FAERS Safety Report 9294094 (Version 1)
Quarter: 2013Q1

REPORT INFORMATION
  Report Type: Spontaneous
  Country: US (occurrence: None)
  Receive Date: 20121226
  Receipt Date: 20121226
  Transmission Date: 20140127
  Serious: Yes (Hospitalization)
  Sender: FDA-Public Use
  Company Number: 350711

PATIENT
  Age: 86 Year
  Sex: Female
  Weight: 53.5 kg

DRUGS (9)
  1. LEVEMIR [Suspect]
     Indication: TYPE 2 DIABETES MELLITUS
     Dates: start: 20120413, end: 20120414
  2. ACTOS (PIOGLITAZONE HYDROCHLORIDE) [Concomitant]
  3. GLIMEPIRIDE (GLIMEPIRIDE) [Concomitant]
  4. JANUVIA (SITAGLIPTIN PHOSPHATE) [Concomitant]
  5. SIMVASTATIN (SIMVASTATIN) [Concomitant]
  6. PLAVIS (CLOPIDOGREL BISULFATE) [Concomitant]
  7. DIOVAN (VALSARTAN) [Concomitant]
  8. DONEPEZIL (DONEPEZIL) [Concomitant]
  9. RISPERIDAL (RISPERIDONE) [Concomitant]

REACTIONS (2)
  - Expired drug administered [None]
  - Hypoglycaemic coma [None]
